FAERS Safety Report 15225845 (Version 1)
Quarter: 2018Q3

REPORT INFORMATION
  Report Type: Spontaneous
  Country: US (occurrence: US)
  Receive Date: 20180801
  Receipt Date: 20180801
  Transmission Date: 20181010
  Serious: No
  Sender: FDA-Public Use
  Company Number: US-PFIZER INC-2018307785

PATIENT

DRUGS (2)
  1. EUCRISA [Suspect]
     Active Substance: CRISABOROLE
     Dosage: UNK, 1X/DAY (BEFORE BED)
  2. EUCRISA [Suspect]
     Active Substance: CRISABOROLE
     Dosage: UNK, 2X/DAY

REACTIONS (4)
  - Application site pain [Unknown]
  - Intentional product misuse [Unknown]
  - Product quality issue [Unknown]
  - Drug ineffective [Unknown]
